FAERS Safety Report 18119022 (Version 1)
Quarter: 2020Q3

REPORT INFORMATION
  Report Type: Spontaneous
  Country: US (occurrence: US)
  Receive Date: 20200806
  Receipt Date: 20200806
  Transmission Date: 20201103
  Serious: Yes (Death, Hospitalization)
  Sender: FDA-Public Use
  Company Number: None

PATIENT
  Age: 62 Year
  Sex: Male
  Weight: 117.93 kg

DRUGS (2)
  1. LOVENOX [Suspect]
     Active Substance: ENOXAPARIN SODIUM
     Indication: THROMBOSIS
     Dosage: ?          QUANTITY:ONE;?
     Route: 058
     Dates: start: 20200601, end: 20200617
  2. OZEMPIC [Suspect]
     Active Substance: SEMAGLUTIDE

REACTIONS (2)
  - Cardiac arrest [None]
  - Thrombosis [None]

NARRATIVE: CASE EVENT DATE: 20200617
